FAERS Safety Report 23419564 (Version 1)
Quarter: 2024Q1

REPORT INFORMATION
  Report Type: Spontaneous
  Country: IT (occurrence: IT)
  Receive Date: 20240118
  Receipt Date: 20240118
  Transmission Date: 20240410
  Serious: Yes (Other)
  Sender: FDA-Public Use
  Company Number: IT-STRIDES ARCOLAB LIMITED-2024SP000574

PATIENT
  Age: 4 Year
  Sex: Male

DRUGS (4)
  1. LETROZOLE [Suspect]
     Active Substance: LETROZOLE
     Indication: Testotoxicosis
     Dosage: UNK
     Route: 065
  2. KETOCONAZOLE [Suspect]
     Active Substance: KETOCONAZOLE
     Indication: Testotoxicosis
     Dosage: UNK
     Route: 065
  3. CYPROTERONE ACETATE [Suspect]
     Active Substance: CYPROTERONE ACETATE
     Indication: Testotoxicosis
     Dosage: UNK
     Route: 065
  4. SPIRONOLACTONE [Suspect]
     Active Substance: SPIRONOLACTONE
     Indication: Testotoxicosis
     Dosage: UNK
     Route: 065

REACTIONS (3)
  - Precocious puberty [Unknown]
  - Adrenal insufficiency [Unknown]
  - Off label use [Unknown]
